FAERS Safety Report 7392274-2 (Version None)
Quarter: 2011Q1

REPORT INFORMATION
  Report Type: 
  Country: None (occurrence: None)
  Receive Date: 20110323
  Receipt Date: 20110311
  Transmission Date: 20110831
  Serious: Yes (Death, Other)
  Sender: FDA-Public Use
  Company Number: ALA_02004_2011

PATIENT
  Sex: Female

DRUGS (1)
  1. REGLAN [Suspect]
     Indication: PRODUCT USED FOR UNKNOWN INDICATION
     Dosage: DF ORAL
     Route: 048
     Dates: start: 20080101, end: 20100108

REACTIONS (7)
  - RESTLESS LEGS SYNDROME [None]
  - ECONOMIC PROBLEM [None]
  - PARKINSON'S DISEASE [None]
  - TARDIVE DYSKINESIA [None]
  - EMOTIONAL DISORDER [None]
  - INJURY [None]
  - EXTRAPYRAMIDAL DISORDER [None]
